FAERS Safety Report 6870683-5 (Version None)
Quarter: 2010Q3

REPORT INFORMATION
  Report Type: 
  Country: None (occurrence: None)
  Receive Date: 20100723
  Receipt Date: 20091007
  Transmission Date: 20110219
  Serious: No
  Sender: FDA-Public Use
  Company Number: A0811640A

PATIENT
  Age: 71 Year
  Sex: Male

DRUGS (2)
  1. TRIAMTERENE AND HYDROCHLOROTHIAZIDE [Suspect]
     Indication: PRODUCT USED FOR UNKNOWN INDICATION
     Route: 065
  2. UROXATRAL [Suspect]
     Indication: PROSTATIC DISORDER
     Dosage: 10MG PER DAY
     Route: 048
     Dates: start: 20090801

REACTIONS (5)
  - BLOOD PRESSURE DECREASED [None]
  - DIZZINESS [None]
  - INSOMNIA [None]
  - MIDDLE INSOMNIA [None]
  - POOR QUALITY SLEEP [None]
